FAERS Safety Report 13777046 (Version 2)
Quarter: 2017Q3

REPORT INFORMATION
  Report Type: Spontaneous
  Country: US (occurrence: US)
  Receive Date: 20170721
  Receipt Date: 20170825
  Transmission Date: 20171127
  Serious: No
  Sender: FDA-Public Use
  Company Number: US-009507513-1707USA006948

PATIENT
  Age: 29 Year
  Sex: Female
  Weight: 56.69 kg

DRUGS (1)
  1. NUVARING [Suspect]
     Active Substance: ETHINYL ESTRADIOL\ETONOGESTREL
     Dosage: 3 WEEKS IN, 1 WEEK BREAK
     Route: 067

REACTIONS (2)
  - No adverse event [Unknown]
  - Complication associated with device [Not Recovered/Not Resolved]
